FAERS Safety Report 5979928-7 (Version None)
Quarter: 2008Q4

REPORT INFORMATION
  Report Type: 
  Country: None (occurrence: None)
  Receive Date: 20081205
  Receipt Date: 20081201
  Transmission Date: 20090506
  Serious: Yes (Hospitalization)
  Sender: FDA-Public Use
  Company Number: NL-BRISTOL-MYERS SQUIBB COMPANY-14424287

PATIENT
  Age: 41 Year
  Sex: Male

DRUGS (3)
  1. CISPLATIN [Suspect]
     Indication: GERM CELL CANCER
     Dosage: 1 DOSAGE FORM = 20 MG/M THREE COURSES.
  2. BLEOMYCIN SULFATE [Suspect]
     Indication: GERM CELL CANCER
     Dosage: DAYS 2, 8 AND 15.
  3. ETOPOSIDE [Suspect]
     Indication: GERM CELL CANCER
     Dosage: 1 DOSAGE FORM = 100 MG/M THREE COURSES, DAYS 1-5.

REACTIONS (1)
  - GUILLAIN-BARRE SYNDROME [None]
